FAERS Safety Report 19020137 (Version 1)
Quarter: 2021Q1

REPORT INFORMATION
  Report Type: Report from Study
  Country: CA (occurrence: CA)
  Receive Date: 20210317
  Receipt Date: 20210317
  Transmission Date: 20210420
  Serious: Yes (Other)
  Sender: FDA-Public Use
  Company Number: CA-BAYER-2019-201758

PATIENT
  Age: 17 Year
  Sex: Male

DRUGS (6)
  1. STIVARGA [Suspect]
     Active Substance: REGORAFENIB
     Indication: OSTEOSARCOMA RECURRENT
     Dosage: 80 MG, QD (3 WEEKS ON 1 WEEK OFF)
     Dates: start: 20200117
  2. STIVARGA [Suspect]
     Active Substance: REGORAFENIB
     Indication: OSTEOSARCOMA RECURRENT
     Dosage: 80 MG, QD
     Dates: start: 20200106, end: 2020
  3. STIVARGA [Suspect]
     Active Substance: REGORAFENIB
     Indication: OSTEOSARCOMA RECURRENT
     Dosage: 80 MG, QD (3 WEEKS ON 1 WEEK OFF)
  4. STIVARGA [Suspect]
     Active Substance: REGORAFENIB
     Indication: OSTEOSARCOMA RECURRENT
     Dosage: 80 MG, QD, 3 WEEKS ON 1 WEEK OFF
     Dates: start: 20191204
  5. STIVARGA [Suspect]
     Active Substance: REGORAFENIB
     Indication: METASTASES TO LUNG
     Dosage: (DOSE INCREASED)
  6. STIVARGA [Suspect]
     Active Substance: REGORAFENIB
     Indication: OSTEOSARCOMA RECURRENT
     Dosage: 120 MG QD

REACTIONS (13)
  - Alopecia [Recovered/Resolved]
  - Product use issue [None]
  - Constipation [None]
  - Product use in unapproved indication [Unknown]
  - Adverse drug reaction [Recovered/Resolved]
  - Ocular hyperaemia [Unknown]
  - Fatigue [None]
  - Blood pressure increased [Unknown]
  - Adverse drug reaction [Not Recovered/Not Resolved]
  - Off label use [None]
  - Mass excision [None]
  - Blister [Recovered/Resolved]
  - Erythema [None]

NARRATIVE: CASE EVENT DATE: 20191106
